FAERS Safety Report 20817923 (Version 5)
Quarter: 2022Q2

REPORT INFORMATION
  Report Type: Report from Study
  Country: IT (occurrence: IT)
  Receive Date: 20220512
  Receipt Date: 20220607
  Transmission Date: 20220721
  Serious: Yes (Hospitalization, Other)
  Sender: FDA-Public Use
  Company Number: IT-CELLTRION INC.-2022IT005857

PATIENT

DRUGS (8)
  1. TRASTUZUMAB [Suspect]
     Active Substance: TRASTUZUMAB
     Indication: Invasive breast carcinoma
     Dosage: LAST DOSE BEFORE SAE 01/03/2022 (384 MG)
     Route: 041
     Dates: start: 20211115, end: 20220301
  2. PACLITAXEL [Suspect]
     Active Substance: PACLITAXEL
     Indication: Invasive breast carcinoma
     Dosage: LAST DOSE BEFORE SAE 01/03/2022 (132 MG)
     Route: 042
     Dates: start: 20211115, end: 20220308
  3. ATEZOLIZUMAB [Suspect]
     Active Substance: ATEZOLIZUMAB
     Indication: Invasive breast carcinoma
     Dosage: LAST DOSE BEFORE SAE 18/01/2022
     Route: 041
     Dates: start: 20211115
  4. CARBOPLATIN [Suspect]
     Active Substance: CARBOPLATIN
     Indication: Invasive breast carcinoma
     Dosage: AT AUC 2 LAST DOSE BEFORE SAE 01/03/2022 (180 MG)
     Route: 042
     Dates: start: 20211115, end: 20220308
  5. PERTUZUMAB [Suspect]
     Active Substance: PERTUZUMAB
     Indication: Invasive breast carcinoma
     Dosage: LAST DOSE BEFORE SAE 01/03/2022 (420 MG)
     Route: 042
     Dates: start: 20211115, end: 20220301
  6. CEFIXIME [Concomitant]
     Active Substance: CEFIXIME
     Indication: Enteritis
     Dosage: UNK
     Dates: start: 20220311, end: 20220315
  7. CIPROFLOXACIN [Concomitant]
     Active Substance: CIPROFLOXACIN
     Indication: Enteritis
     Dosage: UNK
     Dates: start: 20220315, end: 20220316
  8. CERNEVIT [Concomitant]
     Active Substance: VITAMINS
     Indication: Enteritis
     Dosage: UNK
     Dates: start: 20220315, end: 20220315

REACTIONS (2)
  - Immune-mediated enterocolitis [Recovered/Resolved]
  - Off label use [Unknown]

NARRATIVE: CASE EVENT DATE: 20220317
